FAERS Safety Report 4518166-1 (Version None)
Quarter: 2004Q4

REPORT INFORMATION
  Report Type: 
  Country: None (occurrence: None)
  Receive Date: 20041130
  Receipt Date: 20041122
  Transmission Date: 20050328
  Serious: Yes (Other)
  Sender: FDA-Public Use
  Company Number: 200421011BWH

PATIENT
  Age: 93 Year
  Sex: Female

DRUGS (6)
  1. CIPROFLOXACIN HYDROCHLORIDE [Suspect]
     Indication: EAR INFECTION
     Dosage: 500 MG, BID, ORAL
     Route: 048
     Dates: start: 20041108, end: 20041112
  2. CIPROFLOXACIN HYDROCHLORIDE [Suspect]
     Indication: EAR INFECTION
     Dosage: 500 MG, BID, ORAL
     Route: 048
     Dates: start: 20041112
  3. PHOSAMAX (FOSAMAX) [Concomitant]
  4. CALCIUM [Concomitant]
  5. OCUVITE [Concomitant]
  6. DERMOVATE [Concomitant]

REACTIONS (1)
  - SUPRAVENTRICULAR TACHYCARDIA [None]
